FAERS Safety Report 7808450-8 (Version None)
Quarter: 2011Q4

REPORT INFORMATION
  Report Type: 
  Country: None (occurrence: None)
  Receive Date: 20111007
  Receipt Date: 20110922
  Transmission Date: 20120403
  Serious: Yes (Other)
  Sender: FDA-Public Use
  Company Number: 1000024368

PATIENT
  Age: 80 Year
  Sex: Male
  Weight: 77 kg

DRUGS (1)
  1. ROFLUMILAST (ROFLUMILAST) (TABLETS) [Suspect]
     Indication: CHRONIC OBSTRUCTIVE PULMONARY DISEASE
     Dosage: 500 MCG (500 MCG, 1 IN 1 D), ORAL
     Route: 048
     Dates: end: 20110322

REACTIONS (9)
  - UNEVALUABLE EVENT [None]
  - VISUAL IMPAIRMENT [None]
  - AGEUSIA [None]
  - CIRCULATORY COLLAPSE [None]
  - ABDOMINAL DISCOMFORT [None]
  - HYPERHIDROSIS [None]
  - PHOTOPSIA [None]
  - NAUSEA [None]
  - DECREASED APPETITE [None]
